FAERS Safety Report 9317357 (Version 2)
Quarter: 2013Q3

REPORT INFORMATION
  Report Type: Spontaneous
  Country: GR (occurrence: GR)
  Receive Date: 20130530
  Receipt Date: 20130723
  Transmission Date: 20140515
  Serious: Yes (Death, Other)
  Sender: FDA-Public Use
  Company Number: GR-TEVA-406397ISR

PATIENT
  Sex: 0

DRUGS (6)
  1. PAXENE PACLITAXEL [Suspect]
     Indication: NON-SMALL CELL LUNG CANCER
     Dosage: FIRST LINE CHEMOTHERAPY
     Route: 042
  2. CARBOPLATIN [Suspect]
     Indication: NON-SMALL CELL LUNG CANCER
     Dosage: FIRST LINE CHEMOTHERAPY
     Route: 042
  3. BEVACIZUMAB [Suspect]
     Indication: NON-SMALL CELL LUNG CANCER
     Dosage: FIRST LINE CHEMOTHERAPY
     Route: 042
  4. ALIMTA [Suspect]
     Indication: NON-SMALL CELL LUNG CANCER
  5. VINORELBINE [Suspect]
     Indication: NON-SMALL CELL LUNG CANCER
  6. GEMCITABINE [Suspect]
     Indication: NON-SMALL CELL LUNG CANCER

REACTIONS (6)
  - Febrile neutropenia [Fatal]
  - Renal failure acute [Unknown]
  - Neutropenia [Unknown]
  - Thrombocytopenia [Unknown]
  - Anaemia [Unknown]
  - Disease progression [Unknown]
